FAERS Safety Report 8200407-0 (Version None)
Quarter: 2012Q1

REPORT INFORMATION
  Report Type: 
  Country: None (occurrence: None)
  Receive Date: 20120312
  Receipt Date: 20120305
  Transmission Date: 20120608
  Serious: Yes (Other)
  Sender: FDA-Public Use
  Company Number: US-PFIZER INC-2012058386

PATIENT
  Sex: Female
  Weight: 106 kg

DRUGS (3)
  1. EFFEXOR XR [Suspect]
     Indication: DEPRESSION
     Dosage: 75 MG, 1X/DAY
     Route: 048
     Dates: start: 19990101, end: 20120201
  2. PRISTIQ [Suspect]
     Indication: DEPRESSION
     Dosage: 50 MG, 1X/DAY
     Route: 048
     Dates: start: 20120201, end: 20120305
  3. XANAX [Concomitant]
     Dosage: UNK

REACTIONS (16)
  - DYSPNOEA [None]
  - FATIGUE [None]
  - SOMNOLENCE [None]
  - BLOOD SODIUM DECREASED [None]
  - HYPERHIDROSIS [None]
  - WEIGHT INCREASED [None]
  - OEDEMA PERIPHERAL [None]
  - CRYING [None]
  - CONFUSIONAL STATE [None]
  - HYPERSENSITIVITY [None]
  - ARTHRALGIA [None]
  - ANXIETY [None]
  - VISION BLURRED [None]
  - SWELLING FACE [None]
  - MUSCULOSKELETAL STIFFNESS [None]
  - PAIN [None]
